FAERS Safety Report 24749241 (Version 3)
Quarter: 2025Q3

REPORT INFORMATION
  Report Type: Report from Study
  Country: KR (occurrence: KR)
  Receive Date: 20241218
  Receipt Date: 20250810
  Transmission Date: 20251021
  Serious: Yes (Other)
  Sender: ALEXION PHARMACEUTICALS
  Company Number: KR-AstraZeneca-CH-00764804A

PATIENT
  Age: 92 Year
  Sex: Male

DRUGS (4)
  1. OSIMERTINIB [Suspect]
     Active Substance: OSIMERTINIB
     Indication: Lung carcinoma cell type unspecified stage IV
     Dosage: 80 MILLIGRAM, QD
     Dates: start: 20240424, end: 20241025
  2. OSIMERTINIB [Suspect]
     Active Substance: OSIMERTINIB
     Dosage: 80 MILLIGRAM, QD
     Dates: start: 20250117, end: 20250123
  3. OSIMERTINIB [Suspect]
     Active Substance: OSIMERTINIB
     Dosage: 80 MILLIGRAM, EVERY 3RD DAY
     Dates: start: 20250214, end: 20250228
  4. OSIMERTINIB [Suspect]
     Active Substance: OSIMERTINIB
     Dosage: 80 MILLIGRAM, QOD
     Dates: start: 20250301, end: 202504

REACTIONS (13)
  - Dementia [Not Recovered/Not Resolved]
  - Neoplasm progression [Recovered/Resolved]
  - Anaemia [Recovering/Resolving]
  - Pollakiuria [Not Recovered/Not Resolved]
  - Asthenia [Recovering/Resolving]
  - Hypophagia [Recovering/Resolving]
  - Off label use [Unknown]
  - Fatigue [Recovered/Resolved]
  - Mass [Not Recovered/Not Resolved]
  - Drug tolerance [Unknown]
  - Neoplasm progression [Not Recovered/Not Resolved]
  - Eating disorder [Unknown]
  - Therapy interrupted [Not Recovered/Not Resolved]

NARRATIVE: CASE EVENT DATE: 20241025
